FAERS Safety Report 4774929-9 (Version None)
Quarter: 2005Q3

REPORT INFORMATION
  Report Type: 
  Country: None (occurrence: None)
  Receive Date: 20050921
  Receipt Date: 20050803
  Transmission Date: 20060218
  Serious: Yes (Hospitalization, Other)
  Sender: FDA-Public Use
  Company Number: 2005SE04515

PATIENT
  Age: 26352 Day
  Sex: Female

DRUGS (9)
  1. FASLODEX [Suspect]
     Indication: BREAST CANCER METASTATIC
     Route: 030
     Dates: start: 20050201
  2. ZOMETA [Concomitant]
     Dates: end: 20050701
  3. NEXIUM [Concomitant]
     Route: 048
  4. INSULIN [Concomitant]
     Indication: DIABETES MELLITUS
  5. TOLVON [Concomitant]
     Indication: DEPRESSION
  6. THYROXIN SODIUM [Concomitant]
     Indication: HYPOTHYROIDISM
  7. ENALAPRIL MALEATE [Concomitant]
     Indication: HYPERTENSION
     Dates: end: 20050727
  8. COZAAR [Concomitant]
     Indication: HYPERTENSION
     Dates: end: 20050727
  9. GLUCOPHAGE [Concomitant]
     Indication: DIABETES MELLITUS
     Dates: end: 20050727

REACTIONS (4)
  - AZOTAEMIA [None]
  - BLOOD POTASSIUM INCREASED [None]
  - BLOOD SODIUM INCREASED [None]
  - MULTIPLE MYELOMA [None]
